FAERS Safety Report 5528378-6 (Version None)
Quarter: 2007Q4

REPORT INFORMATION
  Report Type: 
  Country: None (occurrence: None)
  Receive Date: 20071121
  Receipt Date: 20071107
  Transmission Date: 20080405
  Serious: Yes (Hospitalization)
  Sender: FDA-Public Use
  Company Number: 2007S1011735

PATIENT
  Age: 47 Year
  Sex: Female

DRUGS (5)
  1. ALLOPURINOL [Suspect]
     Indication: CHRONIC MYELOID LEUKAEMIA
  2. CYTARABINE [Suspect]
  3. FLUDARABINE PHOSPHATE [Suspect]
  4. IDARUBICIN HCL [Suspect]
  5. RASBURICASE (RASBURICASE) [Suspect]

REACTIONS (2)
  - RENAL FAILURE [None]
  - TUMOUR LYSIS SYNDROME [None]
